FAERS Safety Report 4418012-0 (Version None)
Quarter: 2004Q3

REPORT INFORMATION
  Report Type: 
  Country: None (occurrence: None)
  Receive Date: 20040804
  Receipt Date: 20040720
  Transmission Date: 20050211
  Serious: Yes (Hospitalization)
  Sender: FDA-Public Use
  Company Number: 2004-FF-00437FF

PATIENT
  Age: 77 Year
  Sex: Male

DRUGS (11)
  1. CATAPRESSAN (CLONIDINE) (AMV) [Suspect]
     Dosage: 0.15 MG (0.15 MG)
     Route: 042
     Dates: start: 20040421, end: 20040421
  2. TRACRIUM [Concomitant]
  3. ULTIVA [Concomitant]
  4. NUBAIN [Concomitant]
  5. EPHEDRINE (EPHEDRINE) [Concomitant]
  6. ATARAX [Concomitant]
  7. SEVORANE (SEVOFLURANE) [Concomitant]
  8. AMITRIPTYLINE HYDROCHLORIDE [Concomitant]
  9. LIPANOR (CIPROFIBRATE) [Concomitant]
  10. INDAPAMIDE [Concomitant]
  11. ACETAMINOPHEN [Concomitant]

REACTIONS (2)
  - ABDOMINAL PAIN LOWER [None]
  - PANCREATITIS ACUTE [None]
